FAERS Safety Report 20872308 (Version 1)
Quarter: 2022Q2

REPORT INFORMATION
  Report Type: Spontaneous
  Country: US (occurrence: None)
  Receive Date: 20220525
  Receipt Date: 20220525
  Transmission Date: 20220721
  Serious: No
  Sender: FDA-Public Use
  Company Number: None

PATIENT

DRUGS (1)
  1. PALIPERIDONE [Suspect]
     Active Substance: PALIPERIDONE
     Route: 048

REACTIONS (2)
  - Diaphragmatic paralysis [None]
  - Hypoxia [None]

NARRATIVE: CASE EVENT DATE: 20210206
